FAERS Safety Report 6798366-0 (Version None)
Quarter: 2010Q2

REPORT INFORMATION
  Report Type: 
  Country: None (occurrence: None)
  Receive Date: 20100622
  Receipt Date: 20100611
  Transmission Date: 20101027
  Serious: Yes (Death)
  Sender: FDA-Public Use
  Company Number: KV201000195

PATIENT
  Sex: Female

DRUGS (1)
  1. MORPHINE SULFATE [Suspect]
     Indication: PAIN
     Dosage: ORAL
     Route: 048
     Dates: start: 20081024, end: 20081026

REACTIONS (1)
  - MULTIPLE INJURIES [None]
